FAERS Safety Report 17446985 (Version 1)
Quarter: 2020Q1

REPORT INFORMATION
  Report Type: Spontaneous
  Country: DE (occurrence: DE)
  Receive Date: 20200221
  Receipt Date: 20200221
  Transmission Date: 20200409
  Serious: Yes (Other)
  Sender: FDA-Public Use
  Company Number: DE-MYLANLABS-2020M1018723

PATIENT
  Sex: Male

DRUGS (2)
  1. FLUOXETINE [Suspect]
     Active Substance: FLUOXETINE HYDROCHLORIDE
     Indication: PRODUCT USED FOR UNKNOWN INDICATION
     Dosage: UNK
     Route: 065
  2. AMOXI /00249601/ [Interacting]
     Active Substance: AMOXICILLIN
     Indication: ANGINA PECTORIS
     Dosage: UNK (1000 OT)
     Route: 065

REACTIONS (2)
  - Drug interaction [Unknown]
  - Angina pectoris [Unknown]
